FAERS Safety Report 10053938 (Version 2)
Quarter: 2014Q2

REPORT INFORMATION
  Report Type: Spontaneous
  Country: US (occurrence: US)
  Receive Date: 20140402
  Receipt Date: 20140501
  Transmission Date: 20141212
  Serious: No
  Sender: FDA-Public Use
  Company Number: US-AMGEN-USASP2014016168

PATIENT
  Age: 49 Year
  Sex: Female
  Weight: 70.75 kg

DRUGS (14)
  1. ENBREL [Suspect]
     Indication: RHEUMATOID ARTHRITIS
     Dosage: 50 MG, QWK
     Route: 058
     Dates: start: 20140228
  2. CAPSAICIN [Concomitant]
     Dosage: 0.025 % EX CREA, USE 2-3 TIMES PER DAY
     Dates: start: 20130812
  3. CYCLOBENZAPRINE HYDROCHLORIDE [Concomitant]
     Dosage: 10 MG PO TABS, ONE TABLET BY MOUTH AT BEDTIME
     Route: 048
     Dates: start: 20130111
  4. EPIPEN [Concomitant]
     Dosage: 2-PAK 0.3 MG/0.3ML (1:1000) IM DEVI, AS DIRECTED
     Route: 030
     Dates: start: 20091209
  5. FOLIC ACID [Concomitant]
     Dosage: 1 MG PO TABS, ONE TAB BY MOUTH DAILY
     Route: 048
     Dates: start: 20130617
  6. HYDROXYCHLOROQUINE SULFATE [Concomitant]
     Dosage: 200 MG PO TABS, 1 TABLET TWICE DAILY
     Route: 048
     Dates: start: 20130617
  7. METHOTREXATE [Concomitant]
     Dosage: 2.5 MG PO TABS, 5 PILLS IN THE MORNING AND 5 PILLS IN THE EVENING BY MOUTH, ONCE A WEEK
     Dates: start: 20130617
  8. LOVAZA [Concomitant]
     Dosage: 1 G PO CAPS, TWO TABLETS TWICE DAILY
     Route: 048
     Dates: start: 20130617
  9. PROTONIX [Concomitant]
     Dosage: 40 MG PO TBEC, ONE TWICE DAILY
     Dates: start: 20130805
  10. PREDNISONE [Concomitant]
     Dosage: 10 MG PO TABS, 1 TABLET DAILY
     Route: 048
     Dates: start: 20140113
  11. SULFADIAZINE [Concomitant]
     Dosage: 500 MG PO TABS, 2 TABLETS TWICE A DAY
     Route: 048
  12. TRAMADOL HCL [Concomitant]
     Dosage: 1 TABLET EVERY 4-6 HOURS AS NEEDED
     Route: 048
  13. VITAMIN B12                        /00056201/ [Concomitant]
     Dosage: 1000 MCG OR TABS, ONCE A DAY
  14. VITAMIN D                          /00107901/ [Concomitant]
     Dosage: 2000 UNITS PO TABS, TAKE ONE TABLET DAILY

REACTIONS (8)
  - Headache [Not Recovered/Not Resolved]
  - Nausea [Not Recovered/Not Resolved]
  - Vomiting [Not Recovered/Not Resolved]
  - Diarrhoea [Not Recovered/Not Resolved]
  - Abdominal discomfort [Not Recovered/Not Resolved]
  - Lethargy [Not Recovered/Not Resolved]
  - Injection site swelling [Not Recovered/Not Resolved]
  - Injection site erythema [Not Recovered/Not Resolved]
